FAERS Safety Report 5974354-9 (Version None)
Quarter: 2008Q4

REPORT INFORMATION
  Report Type: 
  Country: None (occurrence: None)
  Receive Date: 20081201
  Receipt Date: 20081125
  Transmission Date: 20090506
  Serious: Yes (Other)
  Sender: FDA-Public Use
  Company Number: JP-PFIZER INC-2008097194

PATIENT

DRUGS (1)
  1. SOLANAX [Suspect]
     Route: 048
     Dates: start: 20080401

REACTIONS (1)
  - ROAD TRAFFIC ACCIDENT [None]
